FAERS Safety Report 22028933 (Version 1)
Quarter: 2023Q1

REPORT INFORMATION
  Report Type: Spontaneous
  Country: US (occurrence: US)
  Receive Date: 20230223
  Receipt Date: 20230223
  Transmission Date: 20230418
  Serious: No
  Sender: FDA-Public Use
  Company Number: US-009507513-2302USA006322

PATIENT
  Age: 69 Year
  Sex: Female

DRUGS (2)
  1. KEYTRUDA [Suspect]
     Active Substance: PEMBROLIZUMAB
     Indication: Ovarian cancer
     Dosage: 200MG EVERY 3 WEEKS
     Route: 042
     Dates: start: 20221005
  2. IBUPROFEN [Concomitant]
     Active Substance: IBUPROFEN
     Dosage: 200MG TID

REACTIONS (4)
  - Feeling abnormal [Unknown]
  - Arthritis [Recovered/Resolved]
  - Arthralgia [Recovered/Resolved]
  - Product use in unapproved indication [Unknown]

NARRATIVE: CASE EVENT DATE: 20221005
